FAERS Safety Report 5158687-4 (Version None)
Quarter: 2006Q4

REPORT INFORMATION
  Report Type: 
  Country: None (occurrence: None)
  Receive Date: 20061128
  Receipt Date: 20061027
  Transmission Date: 20070319
  Serious: Yes (Hospitalization, Other)
  Sender: FDA-Public Use
  Company Number: JP-ELI_LILLY_AND_COMPANY-JP200610005244

PATIENT
  Age: 66 Year
  Sex: Male

DRUGS (6)
  1. GEMZAR [Suspect]
     Indication: PANCREATIC CARCINOMA
     Dosage: 1300 MG, UNK
     Route: 042
     Dates: start: 20061013
  2. NOVORAPID                               /DEN/ [Concomitant]
     Indication: DIABETES MELLITUS
     Dosage: 10 IU, EACH MORNING
     Route: 058
     Dates: start: 20061020, end: 20061020
  3. NOVORAPID                               /DEN/ [Concomitant]
     Dosage: 16 IU, EACH MORNING
     Route: 058
     Dates: start: 20061021, end: 20061021
  4. NOVORAPID                               /DEN/ [Concomitant]
     Dosage: 22 IU, EACH MORNING
     Route: 058
     Dates: start: 20061022, end: 20061024
  5. NOVORAPID                               /DEN/ [Concomitant]
     Dosage: 26 IU, EACH MORNING
     Route: 058
     Dates: start: 20061025, end: 20061027
  6. NOVORAPID                               /DEN/ [Concomitant]
     Dosage: 10 IU, EACH MORNING
     Route: 058
     Dates: start: 20061028

REACTIONS (4)
  - BLOOD GLUCOSE INCREASED [None]
  - DRUG INTERACTION [None]
  - HYPOGLYCAEMIA [None]
  - LOSS OF CONSCIOUSNESS [None]
